FAERS Safety Report 23797581 (Version 5)
Quarter: 2025Q1

REPORT INFORMATION
  Report Type: Report from Study
  Country: US (occurrence: US)
  Receive Date: 20240430
  Receipt Date: 20250224
  Transmission Date: 20250409
  Serious: Yes (Death, Other)
  Sender: ALEXION PHARMACEUTICALS
  Company Number: 2024A100588

PATIENT
  Age: 73 Year
  Weight: 63 kg

DRUGS (12)
  1. OLAPARIB [Suspect]
     Active Substance: OLAPARIB
     Indication: Adenocarcinoma
     Dosage: 600 MILLIGRAM, BID
  2. OLAPARIB [Suspect]
     Active Substance: OLAPARIB
     Dosage: 100 MILLIGRAM, BID
  3. VUDALIMAB [Suspect]
     Active Substance: VUDALIMAB
     Indication: Adenocarcinoma
     Dosage: 10 MILLIGRAM/KILOGRAM, Q2W
  4. LIPITOR [Concomitant]
     Active Substance: ATORVASTATIN CALCIUM
     Indication: Adenocarcinoma
  5. LISINOPRIL [Concomitant]
     Active Substance: LISINOPRIL
     Indication: Adenocarcinoma
  6. ACETAMINOPHEN [Concomitant]
     Active Substance: ACETAMINOPHEN
     Indication: Adenocarcinoma
  7. FLOMAX [Concomitant]
     Active Substance: TAMSULOSIN HYDROCHLORIDE
     Indication: Adenocarcinoma
  8. TEMOVATE [Concomitant]
     Active Substance: CLOBETASOL PROPIONATE
     Indication: Adenocarcinoma
  9. OXYCODONE [Concomitant]
     Active Substance: OXYCODONE
     Indication: Adenocarcinoma
  10. KENALOG [Concomitant]
     Active Substance: TRIAMCINOLONE ACETONIDE
     Indication: Adenocarcinoma
  11. IBUPROFEN [Concomitant]
     Active Substance: IBUPROFEN
     Indication: Adenocarcinoma
  12. PREDNISONE [Concomitant]
     Active Substance: PREDNISONE
     Indication: Adenocarcinoma

REACTIONS (5)
  - Death [Fatal]
  - Malignant neoplasm progression [Unknown]
  - Deep vein thrombosis [Not Recovered/Not Resolved]
  - Anaemia [Recovered/Resolved with Sequelae]
  - Product dose omission issue [Unknown]
